FAERS Safety Report 4302617-1 (Version None)
Quarter: 2004Q1

REPORT INFORMATION
  Report Type: 
  Country: None (occurrence: None)
  Receive Date: 20040217
  Receipt Date: 20030122
  Transmission Date: 20041129
  Serious: Yes (Other)
  Sender: FDA-Public Use
  Company Number: 2002137645US

PATIENT
  Age: 51 Year
  Sex: Female
  Weight: 61.2 kg

DRUGS (4)
  1. CYTOTEC [Suspect]
     Indication: ANAPHYLACTIC REACTION
     Dosage: 200 UG, BEFORE MEALS, ORAL
     Route: 048
     Dates: start: 20000101, end: 20021001
  2. CHLORPHENIRAMINE MALEATE AND PSEUDOEPHEDRINE HCL [Concomitant]
  3. PROVENTIL HFA ^SCHERING-PLOUGH^ (SALBUTAMOL) [Concomitant]
  4. BROMPHENIRAMINE [Concomitant]

REACTIONS (6)
  - ANAPHYLACTIC REACTION [None]
  - ANGIONEUROTIC OEDEMA [None]
  - CHEST DISCOMFORT [None]
  - FLUSHING [None]
  - HEADACHE [None]
  - NASAL CONGESTION [None]
